FAERS Safety Report 22752206 (Version 3)
Quarter: 2024Q2

REPORT INFORMATION
  Report Type: Report from Study
  Country: AU (occurrence: AU)
  Receive Date: 20230726
  Receipt Date: 20240606
  Transmission Date: 20240716
  Serious: Yes (Hospitalization, Other)
  Sender: FDA-Public Use
  Company Number: AU-002147023-NVSC2022AU051332

PATIENT
  Sex: Female

DRUGS (1)
  1. KESIMPTA [Suspect]
     Active Substance: OFATUMUMAB
     Indication: Relapsing-remitting multiple sclerosis
     Dosage: 20 MG, QMO
     Route: 058
     Dates: start: 20220204

REACTIONS (7)
  - Myocardial infarction [Unknown]
  - Peripheral swelling [Unknown]
  - Gait disturbance [Unknown]
  - Arteriosclerosis [Unknown]
  - Nausea [Unknown]
  - Laryngitis [Unknown]
  - Inappropriate schedule of product administration [Unknown]
